FAERS Safety Report 9024313 (Version 1)
Quarter: 2013Q1

REPORT INFORMATION
  Report Type: Spontaneous
  Country: MX (occurrence: MX)
  Receive Date: 20130121
  Receipt Date: 20130121
  Transmission Date: 20140127
  Serious: Yes (Hospitalization, Other)
  Sender: FDA-Public Use
  Company Number: PHHY2013MX004797

PATIENT
  Age: 69 Year
  Sex: Female

DRUGS (6)
  1. DIOVAN [Suspect]
     Indication: HYPERTENSION
     Dosage: 320 MG, DAILY
     Route: 048
     Dates: start: 200912
  2. ZINTREPID [Concomitant]
     Indication: BLOOD CHOLESTEROL
     Dosage: 1 DF, Q12H
     Dates: start: 201212
  3. BRAXAN//AMIODARONE HYDROCHLORIDE [Concomitant]
     Indication: ARRHYTHMIA
     Dosage: 1 DF, DAILY
     Dates: start: 201212
  4. DIACEREIN W/MELOXICAM [Concomitant]
     Indication: PAIN
     Dosage: UNK UKN, OCCASIONALLY
  5. PANTOZOL [Concomitant]
     Indication: GASTRITIS
     Dosage: 1 UKN, Q12H
  6. NEXUM [Concomitant]
     Indication: GASTRITIS
     Dosage: 1 DF, Q12H

REACTIONS (2)
  - Arrhythmia [Unknown]
  - Cardiomegaly [Unknown]
